FAERS Safety Report 5044270-8 (Version None)
Quarter: 2006Q2

REPORT INFORMATION
  Report Type: 
  Country: None (occurrence: None)
  Receive Date: 20060629
  Receipt Date: 20060620
  Transmission Date: 20061013
  Serious: Yes (Death, Life-Threatening)
  Sender: FDA-Public Use
  Company Number: 2006JP000812

PATIENT
  Age: 56 Year
  Sex: Male
  Weight: 61 kg

DRUGS (14)
  1. PROGRAF [Suspect]
     Indication: LIVER TRANSPLANT
     Dosage: SEE IMAGE
     Route: 048
     Dates: start: 20040531, end: 20040708
  2. PROGRAF [Suspect]
     Indication: LIVER TRANSPLANT
     Dosage: SEE IMAGE
     Route: 048
     Dates: start: 20040709, end: 20040811
  3. MEDROL ACETATE [Concomitant]
  4. SOLU-MEDROL [Concomitant]
  5. PIPERACILLIN SODIUM [Concomitant]
  6. FLUMARIN (FLOMOXEF SODIUM) [Concomitant]
  7. FUNGUARD (MICAFUNGIN) [Concomitant]
  8. EPOGEN [Concomitant]
  9. HABEKACIN (ARBEKACIN) [Concomitant]
  10. CEFTAZIDIME [Concomitant]
  11. CARBENIN (BETAMIPRON, PANIPENEM) [Concomitant]
  12. DENOSINE (GANCICLOVIR) [Concomitant]
  13. SULFAMETHOXAZOLE + TRIMETHOPRIM [Concomitant]
  14. MINOCYCLINE HCL [Concomitant]

REACTIONS (13)
  - BETA 2 MICROGLOBULIN INCREASED [None]
  - BLOOD BILIRUBIN INCREASED [None]
  - BLOOD LACTATE DEHYDROGENASE INCREASED [None]
  - CARDIAC ARREST [None]
  - CARDIAC TAMPONADE [None]
  - DEPRESSED LEVEL OF CONSCIOUSNESS [None]
  - DIALYSIS [None]
  - HAEMATOMA [None]
  - HISTIOCYTOSIS HAEMATOPHAGIC [None]
  - PANCYTOPENIA [None]
  - POST PROCEDURAL BILE LEAK [None]
  - RESPIRATORY ARREST [None]
  - SERUM FERRITIN INCREASED [None]
